FAERS Safety Report 9001588 (Version 1)
Quarter: 2013Q1

REPORT INFORMATION
  Report Type: Report from Study
  Country: US (occurrence: US)
  Receive Date: 20130107
  Receipt Date: 20130107
  Transmission Date: 20140127
  Serious: Yes (Other)
  Sender: FDA-Public Use
  Company Number: US-BAYER-2012-121622

PATIENT
  Age: 56 Year
  Sex: Female

DRUGS (5)
  1. NEXAVAR [Suspect]
     Indication: HEPATIC CANCER
     Dosage: 200 MG, BID
     Route: 048
     Dates: start: 20121109
  2. NEXAVAR [Suspect]
     Indication: HEPATIC CANCER
     Dosage: 200 MG, BID
     Route: 048
     Dates: start: 20121117
  3. LISINOPRIL [Concomitant]
     Indication: HYPERTENSION
     Dosage: UNK
     Dates: start: 201210
  4. LASIX [Concomitant]
     Dosage: 20 MG, QD
  5. MORPHINE [Concomitant]
     Indication: ABDOMINAL PAIN

REACTIONS (8)
  - Colitis [Recovering/Resolving]
  - Bronchitis [Recovering/Resolving]
  - Nausea [Not Recovered/Not Resolved]
  - Vomiting [Not Recovered/Not Resolved]
  - Pruritus [None]
  - Fatigue [Not Recovered/Not Resolved]
  - Decreased appetite [Recovering/Resolving]
  - Abdominal pain [Not Recovered/Not Resolved]
